FAERS Safety Report 18397076 (Version 1)
Quarter: 2020Q4

REPORT INFORMATION
  Report Type: Spontaneous
  Country: GB (occurrence: GB)
  Receive Date: 20201019
  Receipt Date: 20201019
  Transmission Date: 20210114
  Serious: Yes (Hospitalization)
  Sender: FDA-Public Use
  Company Number: GB-ACCORD-205494

PATIENT
  Age: 62 Year
  Sex: Male

DRUGS (5)
  1. APIXABAN [Suspect]
     Active Substance: APIXABAN
     Indication: DEEP VEIN THROMBOSIS
     Dosage: 10MG TWICE DAILY FOR 1 WEEK AND THEN REDUCED TO 5MG TWICE DAILY
     Route: 048
  2. HEPARIN [Concomitant]
     Active Substance: HEPARIN SODIUM
     Indication: DEEP VEIN THROMBOSIS
  3. APIXABAN [Suspect]
     Active Substance: APIXABAN
     Indication: DEEP VEIN THROMBOSIS
     Dosage: 10MG TWICE DAILY FOR 1 WEEK AND THEN REDUCED TO 5MG TWICE DAILY
     Route: 048
  4. EDOXABAN [Suspect]
     Active Substance: EDOXABAN TOSYLATE
     Indication: DEEP VEIN THROMBOSIS
     Route: 048
  5. RIVAROXABAN [Suspect]
     Active Substance: RIVAROXABAN
     Indication: DEEP VEIN THROMBOSIS
     Route: 048

REACTIONS (3)
  - Headache [Recovered/Resolved]
  - Dizziness [Recovered/Resolved]
  - Lethargy [Recovered/Resolved]
